FAERS Safety Report 7290672-9 (Version None)
Quarter: 2011Q1

REPORT INFORMATION
  Report Type: 
  Country: None (occurrence: None)
  Receive Date: 20110214
  Receipt Date: 20110209
  Transmission Date: 20110831
  Serious: Yes (Other)
  Sender: FDA-Public Use
  Company Number: US-PFIZER INC-2011029746

PATIENT
  Sex: Male
  Weight: 81.633 kg

DRUGS (9)
  1. LYRICA [Suspect]
     Indication: MUSCLE SPASMS
     Dosage: UNK
  2. SECTRAL [Concomitant]
     Indication: BLOOD CHOLESTEROL INCREASED
     Dosage: UNK
  3. LYRICA [Suspect]
     Indication: PAIN
  4. GABAPENTIN [Suspect]
     Indication: PAIN
  5. CELEXA [Concomitant]
     Indication: DEPRESSION
     Dosage: UNK
  6. TOVIAZ [Suspect]
     Indication: BLADDER DISORDER
  7. SIMVASTATIN [Concomitant]
     Indication: HYPOTENSION
     Dosage: UNK
  8. GABAPENTIN [Suspect]
     Indication: MUSCLE SPASMS
     Dosage: 800 MG, 4X/DAY
     Route: 048
  9. TOVIAZ [Suspect]
     Indication: HYPERTONIC BLADDER
     Dosage: 8 MG, DAILY
     Route: 048
     Dates: start: 20101201

REACTIONS (2)
  - DRY MOUTH [None]
  - DYSPHAGIA [None]
